FAERS Safety Report 16183548 (Version 1)
Quarter: 2019Q2

REPORT INFORMATION
  Report Type: Spontaneous
  Country: US (occurrence: US)
  Receive Date: 20190411
  Receipt Date: 20190411
  Transmission Date: 20190711
  Serious: No
  Sender: FDA-Public Use
  Company Number: US-MACLEODS PHARMACEUTICALS US LTD-MAC2019020755

PATIENT

DRUGS (1)
  1. ARIPIPRAZOLE  5 MG [Suspect]
     Active Substance: ARIPIPRAZOLE
     Indication: PRODUCT USED FOR UNKNOWN INDICATION
     Dosage: UNK,  5 MG ONE TABLET BY MOUTH DAILY
     Route: 048
     Dates: start: 20190326, end: 20190329

REACTIONS (1)
  - Swelling [Not Recovered/Not Resolved]
